FAERS Safety Report 24805459 (Version 2)
Quarter: 2025Q1

REPORT INFORMATION
  Report Type: Spontaneous
  Country: ES (occurrence: ES)
  Receive Date: 20250103
  Receipt Date: 20250110
  Transmission Date: 20250409
  Serious: Yes (Other)
  Sender: ABBVIE
  Company Number: None

PATIENT

DRUGS (9)
  1. ESCITALOPRAM [Suspect]
     Active Substance: ESCITALOPRAM OXALATE
     Indication: Persistent depressive disorder
     Dosage: 10 MILLIGRAM
     Route: 065
     Dates: start: 201310, end: 201406
  2. ZOLPIDEM [Concomitant]
     Active Substance: ZOLPIDEM TARTRATE
     Indication: Persistent depressive disorder
     Dosage: 10 MILLIGRAM
     Route: 065
  3. ZOLPIDEM [Concomitant]
     Active Substance: ZOLPIDEM TARTRATE
     Indication: Persistent depressive disorder
     Dosage: DOSE UNIT FREQUENCY: 10 MG-MILLIGRAMS. DOSE PER DOSE: 10 MG-MILLIGRAMS. NO. OF SOCKETS PER FREQUENCY
     Route: 065
     Dates: start: 201310
  4. LEVOTHYROXINE [Concomitant]
     Active Substance: LEVOTHYROXINE
     Indication: Primary hypothyroidism
     Dosage: DOSE UNIT FREQUENCY: 88 MICROG-MICROGRAMS DOSE PER DOSE: 88 MICROG-MICROGRAMS NO. OF SOCKETS PER FRE
     Route: 065
  5. SIMVASTATIN [Concomitant]
     Active Substance: SIMVASTATIN
     Indication: Dyslipidaemia
     Dosage: 20 MILLIGRAM
     Route: 065
  6. SIMVASTATIN [Concomitant]
     Active Substance: SIMVASTATIN
     Indication: Dyslipidaemia
     Dosage: DOSE UNIT FREQUENCY: 20 MG-MILLIGRAMS DOSE PER DOSE: 20 MG-MILLIGRAMS NO. OF SOCKETS PER FREQUENCY U
     Route: 065
  7. LEVOTHYROXINE [Concomitant]
     Active Substance: LEVOTHYROXINE
     Indication: Primary hypothyroidism
     Route: 065
  8. ENALAPRIL [Concomitant]
     Active Substance: ENALAPRIL
     Indication: Hypertension
     Route: 065
  9. ENALAPRIL [Concomitant]
     Active Substance: ENALAPRIL
     Indication: Hypertension
     Dosage: DOSE FREQUENCY UNIT: 20 MG-MILLIGRAMS DOSE PER DOSE: 20 MG-MILLIGRAMS NUMBER OF DOSES PER FREQUENCY
     Route: 065

REACTIONS (1)
  - Ventricular extrasystoles [Recovered/Resolved]

NARRATIVE: CASE EVENT DATE: 20140601
